FAERS Safety Report 17818090 (Version 1)
Quarter: 2020Q2

REPORT INFORMATION
  Report Type: Spontaneous
  Country: FR (occurrence: FR)
  Receive Date: 20200522
  Receipt Date: 20200522
  Transmission Date: 20200714
  Serious: Yes (Hospitalization)
  Sender: FDA-Public Use
  Company Number: FR-MYLANLABS-2020M1050322

PATIENT
  Age: 64 Year
  Sex: Female

DRUGS (9)
  1. IRBESARTAN BIOGARAN [Suspect]
     Active Substance: IRBESARTAN
     Dosage: 1 DOSAGE FORM, QD
     Route: 048
     Dates: start: 2014, end: 2016
  2. IRBESARTAN BIOGARAN [Suspect]
     Active Substance: IRBESARTAN
     Dosage: 1 DOSAGE FORM, QD
     Route: 048
     Dates: start: 2014, end: 2014
  3. KARDEGIC [Concomitant]
     Active Substance: ASPIRIN DL-LYSINE
     Indication: ANTICOAGULANT THERAPY
     Dosage: 1 DOSAGE FORM, QD
     Dates: start: 2014
  4. LUTEINE                            /00110701/ [Concomitant]
     Active Substance: PROGESTERONE
     Indication: PRODUCT USED FOR UNKNOWN INDICATION
     Dosage: UNK
  5. LEXOMIL [Concomitant]
     Active Substance: BROMAZEPAM
     Indication: ANXIETY
     Dosage: 0.25 DOSAGE FORM, BID
     Route: 065
  6. BISOPROLOL [Suspect]
     Active Substance: BISOPROLOL
     Indication: PRODUCT USED FOR UNKNOWN INDICATION
     Dosage: UNK
     Route: 065
     Dates: end: 2014
  7. IRBESARTAN BIOGARAN [Suspect]
     Active Substance: IRBESARTAN
     Indication: HYPERTENSION
     Dosage: DOSE REINTRODUCED
     Route: 048
     Dates: start: 2016
  8. LOXEN                              /00639802/ [Concomitant]
     Active Substance: NICARDIPINE HYDROCHLORIDE
     Indication: HYPERTENSION
     Dates: start: 2014
  9. LACTIBIANE [Concomitant]
     Indication: PRODUCT USED FOR UNKNOWN INDICATION

REACTIONS (3)
  - Treatment noncompliance [Unknown]
  - Arrhythmia [Not Recovered/Not Resolved]
  - Blood pressure increased [Recovered/Resolved]

NARRATIVE: CASE EVENT DATE: 2014
